FAERS Safety Report 23645903 (Version 5)
Quarter: 2024Q3

REPORT INFORMATION
  Report Type: Spontaneous
  Country: IN (occurrence: IN)
  Receive Date: 20240319
  Receipt Date: 20240913
  Transmission Date: 20241017
  Serious: Yes (Other)
  Sender: ROCHE
  Company Number: IN-ROCHE-3478454

PATIENT
  Age: 21 Year
  Sex: Male

DRUGS (1)
  1. TECENTRIQ [Suspect]
     Active Substance: ATEZOLIZUMAB
     Indication: Thymoma
     Route: 041
     Dates: start: 20231122

REACTIONS (5)
  - Disease progression [Unknown]
  - Off label use [Unknown]
  - Lymphadenopathy [Unknown]
  - Hypotension [Unknown]
  - Pyrexia [Unknown]
